FAERS Safety Report 10927249 (Version 1)
Quarter: 2015Q1

REPORT INFORMATION
  Report Type: Spontaneous
  Country: US (occurrence: None)
  Receive Date: 20150128
  Receipt Date: 20150128
  Transmission Date: 20150721
  Serious: No
  Sender: FDA-Public Use
  Company Number: 2014TUS014214

PATIENT
  Age: 66 Year
  Sex: Male

DRUGS (5)
  1. BRINTELLIX [Suspect]
     Active Substance: VORTIOXETINE HYDROBROMIDE
     Indication: DEPRESSION
     Route: 048
     Dates: start: 20141013, end: 20141123
  2. PRIMIDONE (PRIMIDONE) [Concomitant]
  3. FLOMAX [Concomitant]
     Active Substance: TAMSULOSIN HYDROCHLORIDE
  4. KLONOPIN [Concomitant]
     Active Substance: CLONAZEPAM
  5. VALPROIC ACID. [Concomitant]
     Active Substance: VALPROIC ACID

REACTIONS (3)
  - Gastrointestinal sounds abnormal [None]
  - Abdominal distension [None]
  - Constipation [None]

NARRATIVE: CASE EVENT DATE: 20141027
